FAERS Safety Report 7638602-1 (Version None)
Quarter: 2011Q3

REPORT INFORMATION
  Report Type: 
  Country: None (occurrence: None)
  Receive Date: 20110711
  Receipt Date: 20110324
  Transmission Date: 20111222
  Serious: Yes (Other)
  Sender: FDA-Public Use
  Company Number: ICP201103-000464

PATIENT

DRUGS (2)
  1. REGLAN [Suspect]
     Dates: start: 20000501, end: 20100201
  2. METOCLOPRAMIDE HYDROCHLORIDE [Suspect]
     Dates: start: 20000501, end: 20100201

REACTIONS (2)
  - EXTRAPYRAMIDAL DISORDER [None]
  - DYSKINESIA [None]
